FAERS Safety Report 4298731-X (Version None)
Quarter: 2004Q1

REPORT INFORMATION
  Report Type: 
  Country: None (occurrence: None)
  Receive Date: 20040126
  Receipt Date: 20031028
  Transmission Date: 20041129
  Serious: No
  Sender: FDA-Public Use
  Company Number: USA031051032

PATIENT
  Age: 6 Year
  Sex: Female
  Weight: 35 kg

DRUGS (2)
  1. STRATTERA [Suspect]
     Dosage: 25 MG/DAY
     Dates: start: 20030901
  2. ADDERALL 10 [Concomitant]

REACTIONS (2)
  - ANTISOCIAL BEHAVIOUR [None]
  - NERVOUSNESS [None]
